FAERS Safety Report 6875382-1 (Version None)
Quarter: 2010Q3

REPORT INFORMATION
  Report Type: 
  Country: None (occurrence: None)
  Receive Date: 20100727
  Receipt Date: 20100720
  Transmission Date: 20110219
  Serious: Yes (Hospitalization)
  Sender: FDA-Public Use
  Company Number: US-JNJFOC-20100503083

PATIENT
  Sex: Male
  Weight: 17.24 kg

DRUGS (3)
  1. CHILDREN'S MOTRIN [Suspect]
     Indication: HEADACHE
     Route: 048
  2. CHILDREN'S MOTRIN [Suspect]
     Indication: PYREXIA
     Route: 048
  3. CHILDREN'S MOTRIN [Suspect]
     Indication: INFLUENZA
     Route: 048

REACTIONS (3)
  - INTENTIONAL DRUG MISUSE [None]
  - PRODUCT QUALITY ISSUE [None]
  - THROMBOCYTOPENIA [None]
